FAERS Safety Report 22012532 (Version 1)
Quarter: 2023Q1

REPORT INFORMATION
  Report Type: Spontaneous
  Country: PT (occurrence: PT)
  Receive Date: 20230220
  Receipt Date: 20230220
  Transmission Date: 20230417
  Serious: Yes (Other)
  Sender: FDA-Public Use
  Company Number: None

PATIENT
  Age: 71 Year
  Sex: Male
  Weight: 93 kg

DRUGS (9)
  1. ZYTIGA [Suspect]
     Active Substance: ABIRATERONE ACETATE
     Indication: Prostate cancer
     Route: 048
     Dates: start: 20221027
  2. HYGROTON [Concomitant]
     Active Substance: CHLORTHALIDONE
  3. ADALAT CC [Concomitant]
     Active Substance: NIFEDIPINE
  4. DEXKETOPROFEN\TRAMADOL [Concomitant]
     Active Substance: DEXKETOPROFEN\TRAMADOL
     Dosage: SOS
  5. GOSERELIN ACETATE [Concomitant]
     Active Substance: GOSERELIN ACETATE
     Route: 048
  6. CANDESARTAN [Concomitant]
     Active Substance: CANDESARTAN
  7. PITAVASTATIN [Concomitant]
     Active Substance: PITAVASTATIN
  8. ALLOPURINOL [Concomitant]
     Active Substance: ALLOPURINOL
  9. MORPHINE [Concomitant]
     Active Substance: MORPHINE
     Dosage: SOS
     Route: 048

REACTIONS (4)
  - Hepatotoxicity [Recovered/Resolved]
  - Thrombocytopenia [Recovered/Resolved]
  - Oedema peripheral [Recovered/Resolved]
  - Hypokalaemia [Recovered/Resolved]

NARRATIVE: CASE EVENT DATE: 20221109
